FAERS Safety Report 9154131 (Version 2)
Quarter: 2013Q2

REPORT INFORMATION
  Report Type: Spontaneous
  Country: US (occurrence: US)
  Receive Date: 20130311
  Receipt Date: 20130508
  Transmission Date: 20140414
  Serious: No
  Sender: FDA-Public Use
  Company Number: US-PFIZER INC-2013079922

PATIENT
  Age: 53 Year
  Sex: Male
  Weight: 83.9 kg

DRUGS (6)
  1. CELEBREX [Suspect]
     Indication: SPONDYLITIS
     Dosage: 200 MG, 1X/DAY
     Route: 048
     Dates: start: 2008, end: 201302
  2. CELEBREX [Suspect]
     Indication: ARTHRALGIA
  3. WELLBUTRIN [Concomitant]
     Dosage: 150 MG, 1X/DAY (DAILY)
  4. FLUOXETINE [Concomitant]
     Dosage: 20 MG, 1X/DAY
     Route: 048
  5. OMEPRAZOLE [Concomitant]
     Dosage: 20 MG, 1X/DAY
     Route: 048
  6. SEROQUEL [Concomitant]
     Dosage: 100 MG, 1X/DAY
     Route: 048

REACTIONS (2)
  - Muscle contractions involuntary [Recovered/Resolved]
  - Back pain [Recovered/Resolved]
